FAERS Safety Report 5566708-X (Version None)
Quarter: 2007Q4

REPORT INFORMATION
  Report Type: 
  Country: None (occurrence: None)
  Receive Date: 20071218
  Receipt Date: 20071218
  Transmission Date: 20080405
  Serious: Yes (Other)
  Sender: FDA-Public Use
  Company Number: None

PATIENT
  Age: 52 Year
  Sex: Female
  Weight: 67.3592 kg

DRUGS (3)
  1. APREPITANT   80MG   MERCK [Suspect]
     Indication: CHEMOTHERAPY
     Dosage: 80MG  DAILY  PO
     Route: 048
     Dates: start: 20070904, end: 20070906
  2. ADRIAMYCIN PFS [Concomitant]
  3. OXYCODONE HCL [Concomitant]

REACTIONS (1)
  - GRAND MAL CONVULSION [None]
